FAERS Safety Report 22177914 (Version 1)
Quarter: 2023Q2

REPORT INFORMATION
  Report Type: Spontaneous
  Country: US (occurrence: US)
  Receive Date: 20230405
  Receipt Date: 20230405
  Transmission Date: 20230721
  Serious: Yes (Hospitalization)
  Sender: FDA-Public Use
  Company Number: US-BAYER-2023A041638

PATIENT
  Age: 84 Year
  Sex: Male

DRUGS (7)
  1. ADEMPAS [Suspect]
     Active Substance: RIOCIGUAT
     Indication: Pulmonary hypertension
     Dosage: 2 MG, TID
     Route: 048
     Dates: start: 20200318
  2. FUROSEMIDE [Concomitant]
     Active Substance: FUROSEMIDE
  3. APIXABAN [Concomitant]
     Active Substance: APIXABAN
  4. WIXELA INHUB [Concomitant]
     Active Substance: FLUTICASONE PROPIONATE\SALMETEROL XINAFOATE
  5. ALBUTEROL SULFATE [Concomitant]
     Active Substance: ALBUTEROL SULFATE
  6. TYLENOL [Concomitant]
     Active Substance: ACETAMINOPHEN
  7. DICLOFENAC SODIUM [Concomitant]
     Active Substance: DICLOFENAC SODIUM

REACTIONS (5)
  - Chronic respiratory failure [None]
  - Cardiac failure [None]
  - Pulmonary hypertension [None]
  - Dyspnoea [None]
  - Respiratory rate increased [None]

NARRATIVE: CASE EVENT DATE: 20230307
